FAERS Safety Report 7500430-5 (Version None)
Quarter: 2011Q2

REPORT INFORMATION
  Report Type: 
  Country: None (occurrence: None)
  Receive Date: 20110524
  Receipt Date: 20110315
  Transmission Date: 20111010
  Serious: No
  Sender: FDA-Public Use
  Company Number: US-BRISTOL-MYERS SQUIBB COMPANY-15610041

PATIENT
  Age: 68 Year
  Sex: Male

DRUGS (7)
  1. FENOFIBRATE [Concomitant]
  2. OXYCODONE HCL [Concomitant]
  3. ONGLYZA [Suspect]
     Indication: DIABETES MELLITUS
     Dates: start: 20110314
  4. FOSINOPRIL SODIUM [Concomitant]
  5. DILTIAZEM HCL [Concomitant]
  6. CLONIDINE [Concomitant]
  7. NEXIUM [Concomitant]

REACTIONS (1)
  - BLOOD GLUCOSE DECREASED [None]
